FAERS Safety Report 9115165 (Version 3)
Quarter: 2014Q1

REPORT INFORMATION
  Report Type: Report from Study
  Country: ES (occurrence: ES)
  Receive Date: 20130225
  Receipt Date: 20140325
  Transmission Date: 20141002
  Serious: Yes (Other)
  Sender: FDA-Public Use
  Company Number: ES-VERTEX PHARMACEUTICALS INC.-2013-002585

PATIENT
  Sex: 0

DRUGS (5)
  1. INCIVO [Suspect]
     Indication: HEPATITIS C
     Dosage: UNK
     Route: 065
  2. PEG INTERFERON [Concomitant]
     Indication: HEPATITIS C
     Dosage: DOSAGE FORM: UNKNOWN
     Route: 065
  3. RIBAVIRIN [Concomitant]
     Indication: HEPATITIS C
     Dosage: DOSAGE FORM: UNKNOWN
     Route: 065
  4. RIBAVIRIN [Concomitant]
     Dosage: DOSAGE FORM: UNKNOWN
     Route: 065
  5. RIBAVIRIN [Concomitant]
     Dosage: DOSAGE FORM: UNKNOWN
     Route: 065

REACTIONS (29)
  - Hepatitis C [Unknown]
  - Depression [Unknown]
  - Visual impairment [Unknown]
  - Asthenia [Unknown]
  - Neutropenia [Unknown]
  - Thrombocytopenia [Unknown]
  - Pruritus [Unknown]
  - Rash [Unknown]
  - Anaemia [Unknown]
  - Dyspepsia [Unknown]
  - Headache [Unknown]
  - Anxiety [Unknown]
  - Insomnia [Unknown]
  - Pyrexia [Unknown]
  - Cough [Unknown]
  - Decreased appetite [Unknown]
  - Myalgia [Unknown]
  - Abdominal pain upper [Unknown]
  - Alopecia [Unknown]
  - Nervousness [Unknown]
  - Upper respiratory tract infection [Unknown]
  - Respiratory tract infection [Unknown]
  - Ear infection [Unknown]
  - Urinary tract infection [Unknown]
  - Skin infection [Unknown]
  - Diarrhoea [Unknown]
  - Haemorrhoids [Unknown]
  - Nausea [Unknown]
  - Anorectal discomfort [Unknown]
